FAERS Safety Report 8621946-4 (Version None)
Quarter: 2012Q3

REPORT INFORMATION
  Report Type: 
  Country: None (occurrence: None)
  Receive Date: 20120822
  Receipt Date: 20120822
  Transmission Date: 20120928
  Serious: Yes (Life-Threatening, Hospitalization, Disabling)
  Sender: FDA-Public Use
  Company Number: None

PATIENT
  Sex: Female
  Weight: 58.0604 kg

DRUGS (2)
  1. NUVARING [Suspect]
     Indication: DYSFUNCTIONAL UTERINE BLEEDING
     Dosage: INTRAVAGINAL
     Route: 067
     Dates: start: 20100501, end: 20100701
  2. ETHINYL ESTRADIOL/ETONOGESTREL [Concomitant]

REACTIONS (2)
  - JUGULAR VEIN THROMBOSIS [None]
  - CEREBRAL HAEMORRHAGE [None]
